FAERS Safety Report 4821996-X (Version None)
Quarter: 2005Q4

REPORT INFORMATION
  Report Type: 
  Country: None (occurrence: None)
  Receive Date: 20051107
  Receipt Date: 20051028
  Transmission Date: 20060501
  Serious: Yes (Hospitalization)
  Sender: FDA-Public Use
  Company Number: PH-JNJFOC-20051100275

PATIENT
  Age: 35 Year
  Sex: Female
  Weight: 61.24 kg

DRUGS (3)
  1. RISPERDAL [Suspect]
     Indication: BIPOLAR DISORDER
     Dosage: TAKEN AT NIGHT
     Route: 048
     Dates: start: 20050217, end: 20050227
  2. OXCARBAZEPINE [Concomitant]
  3. CLONAZEPAM [Concomitant]

REACTIONS (3)
  - BLOOD PROLACTIN INCREASED [None]
  - GALACTORRHOEA [None]
  - GALLBLADDER DISORDER [None]
